FAERS Safety Report 4623844-X (Version None)
Quarter: 2005Q1

REPORT INFORMATION
  Report Type: 
  Country: None (occurrence: None)
  Receive Date: 20050331
  Receipt Date: 20050322
  Transmission Date: 20050727
  Serious: Yes (Hospitalization)
  Sender: FDA-Public Use
  Company Number: 200512366US

PATIENT
  Age: 45 Year
  Sex: Female

DRUGS (3)
  1. KETEK [Suspect]
     Indication: INFLUENZA
     Dosage: DOSE: 2 TABLETS
     Route: 048
  2. ROBITUSSIN-CF [Concomitant]
     Indication: COUGH
     Dosage: DOSE: ONE TSP
  3. TYLENOL (CAPLET) [Concomitant]
     Indication: PYREXIA

REACTIONS (4)
  - GASTRIC ULCER HAEMORRHAGE [None]
  - HAEMATEMESIS [None]
  - HYPOTENSION [None]
  - SINUSITIS [None]
